FAERS Safety Report 16361433 (Version 1)
Quarter: 2019Q3

REPORT INFORMATION
  Report Type: Spontaneous
  Country: US (occurrence: US)
  Receive Date: 20190524
  Receipt Date: 20190524
  Transmission Date: 20191004
  Serious: Yes (Hospitalization)
  Sender: FDA-Public Use
  Company Number: None

PATIENT
  Sex: Female

DRUGS (3)
  1. IBRANCE [Suspect]
     Active Substance: PALBOCICLIB
     Indication: MALIGNANT NIPPLE NEOPLASM FEMALE
     Route: 048
  2. FASLODEX INJ 250/5ML [Concomitant]
     Dates: start: 20180122
  3. ZOMETA INJ 4MG/5ML [Concomitant]
     Dates: start: 20180122

REACTIONS (1)
  - Lower limb fracture [None]
